FAERS Safety Report 7047362-7 (Version None)
Quarter: 2010Q4

REPORT INFORMATION
  Report Type: 
  Country: None (occurrence: None)
  Receive Date: 20101015
  Receipt Date: 20101012
  Transmission Date: 20110411
  Serious: Yes (Death, Hospitalization, Other)
  Sender: FDA-Public Use
  Company Number: PHHY2010TW52919

PATIENT
  Sex: Male

DRUGS (2)
  1. GLEEVEC [Suspect]
     Indication: GASTROINTESTINAL STROMAL TUMOUR
     Dosage: 400 MG, UNK
     Route: 048
     Dates: start: 20100122
  2. GLEEVEC [Suspect]
     Dosage: 600 MG, UNK
     Route: 048

REACTIONS (6)
  - ABDOMINAL PAIN [None]
  - HEAT STROKE [None]
  - RENAL FAILURE [None]
  - SEPSIS [None]
  - SYNCOPE [None]
  - VOMITING [None]
